FAERS Safety Report 13934533 (Version 2)
Quarter: 2017Q3

REPORT INFORMATION
  Report Type: Report from Study
  Country: US (occurrence: US)
  Receive Date: 20170905
  Receipt Date: 20170926
  Transmission Date: 20171127
  Serious: No
  Sender: FDA-Public Use
  Company Number: PHEH2017US028372

PATIENT
  Sex: Female
  Weight: 92.7 kg

DRUGS (1)
  1. COSENTYX [Suspect]
     Active Substance: SECUKINUMAB
     Indication: PSORIATIC ARTHROPATHY
     Dosage: 150 MG, QMO (EVERY 04 WEEKS)
     Route: 058
     Dates: start: 201706

REACTIONS (2)
  - Rash pruritic [Unknown]
  - Pruritus [Unknown]
